FAERS Safety Report 16013345 (Version 1)
Quarter: 2019Q1

REPORT INFORMATION
  Report Type: Spontaneous
  Country: US (occurrence: US)
  Receive Date: 20190227
  Receipt Date: 20190227
  Transmission Date: 20190418
  Serious: No
  Sender: FDA-Public Use
  Company Number: US-NOVOPROD-627705

PATIENT
  Sex: Female
  Weight: 130.16 kg

DRUGS (1)
  1. SAXENDA [Suspect]
     Active Substance: LIRAGLUTIDE
     Indication: PRODUCT USED FOR UNKNOWN INDICATION
     Dosage: 0.6 MG, UNK
     Route: 058

REACTIONS (5)
  - Thirst [Unknown]
  - Unevaluable event [Unknown]
  - Dry mouth [Unknown]
  - Fatigue [Unknown]
  - Abdominal pain upper [Recovered/Resolved]
